FAERS Safety Report 8816899 (Version 1)
Quarter: 2012Q4

REPORT INFORMATION
  Report Type: Spontaneous
  Country: US (occurrence: None)
  Receive Date: 20121002
  Receipt Date: 20121002
  Transmission Date: 20130627
  Serious: No
  Sender: FDA-Public Use
  Company Number: None

PATIENT
  Sex: Female
  Weight: 68.04 kg

DRUGS (2)
  1. MONTELUKAST [Suspect]
     Indication: ASTHMA
     Dates: start: 20120805, end: 20120920
  2. MONTELUKAST [Suspect]
     Indication: MULTIPLE ALLERGIES
     Dates: start: 20120805, end: 20120920

REACTIONS (3)
  - Nightmare [None]
  - Drug ineffective [None]
  - Product substitution issue [None]
